FAERS Safety Report 8432900-X (Version None)
Quarter: 2012Q2

REPORT INFORMATION
  Report Type: 
  Country: None (occurrence: None)
  Receive Date: 20120613
  Receipt Date: 20120604
  Transmission Date: 20120825
  Serious: Yes (Hospitalization)
  Sender: FDA-Public Use
  Company Number: ES-JNJFOC-20120603163

PATIENT
  Age: 47 Year
  Sex: Male

DRUGS (2)
  1. REMICADE [Suspect]
     Indication: WEGENER'S GRANULOMATOSIS
     Route: 042
     Dates: start: 20070101
  2. REMICADE [Suspect]
     Dosage: RESTARTED THE TREATMENT
     Route: 042
     Dates: start: 20120307

REACTIONS (5)
  - ANAPHYLACTOID REACTION [None]
  - HYPERHIDROSIS [None]
  - LOSS OF CONSCIOUSNESS [None]
  - INFUSION RELATED REACTION [None]
  - HYPOTENSION [None]
